FAERS Safety Report 16553966 (Version 3)
Quarter: 2019Q3

REPORT INFORMATION
  Report Type: Report from Study
  Country: US (occurrence: US)
  Receive Date: 20190710
  Receipt Date: 20190909
  Transmission Date: 20191004
  Serious: No
  Sender: FDA-Public Use
  Company Number: US-009507513-1907USA003774

PATIENT
  Age: 57 Year
  Sex: Female

DRUGS (1)
  1. PROVENTIL [Suspect]
     Active Substance: ALBUTEROL
     Dosage: 2 TO 4 PUFFS EVERY 6 HOURS AS NEEDED; CONCENTRATION: 90MCG/ACT 6.8 GM
     Route: 055

REACTIONS (4)
  - Dyspnoea [Recovering/Resolving]
  - Poor quality device used [Unknown]
  - Product taste abnormal [Unknown]
  - Product quality issue [Unknown]

NARRATIVE: CASE EVENT DATE: 20190703
